FAERS Safety Report 17762522 (Version 2)
Quarter: 2020Q2

REPORT INFORMATION
  Report Type: Report from Study
  Country: NL (occurrence: NL)
  Receive Date: 20200508
  Receipt Date: 20200519
  Transmission Date: 20200714
  Serious: Yes (Life-Threatening, Hospitalization, Other)
  Sender: FDA-Public Use
  Company Number: NL-AMGEN-NLDSL2020040436

PATIENT
  Age: 55 Year
  Sex: Female
  Weight: 99 kg

DRUGS (5)
  1. CETOMACROGOL [Concomitant]
     Active Substance: COSMETICS
     Dosage: CREAM UNK
  2. LISINOPRIL. [Concomitant]
     Active Substance: LISINOPRIL
     Indication: HYPERTENSION
     Dosage: 5 MILLIGRAM, QD
     Dates: start: 2017
  3. XGEVA [Suspect]
     Active Substance: DENOSUMAB
     Indication: PROPHYLAXIS
     Dosage: 120 MILLIGRAM, Q4WK
     Route: 065
     Dates: start: 20190430
  4. DEXTRAN [Concomitant]
     Active Substance: DEXTRAN
     Dosage: 70/HYPROMELLOSE EYEDR 1/3MG/ML FL 15ML UNK,
  5. NADROPARINE [Concomitant]
     Active Substance: NADROPARIN
     Dosage: INJLQ WWSP 19000IE=1ML (19000IE/ML) 1D1IJ

REACTIONS (1)
  - Pulmonary embolism [Recovered/Resolved]

NARRATIVE: CASE EVENT DATE: 20200218
